FAERS Safety Report 25589703 (Version 1)
Quarter: 2025Q3

REPORT INFORMATION
  Report Type: Report from Study
  Country: US (occurrence: TR)
  Receive Date: 20250722
  Receipt Date: 20250722
  Transmission Date: 20251020
  Serious: Yes (Life-Threatening, Hospitalization, Other)
  Sender: RANBAXY
  Company Number: US-SUN PHARMACEUTICAL INDUSTRIES LTD-2025R1-517296

PATIENT
  Age: 34 Year
  Sex: Male

DRUGS (1)
  1. RANITIDINE [Suspect]
     Active Substance: RANITIDINE
     Indication: Antiallergic therapy
     Route: 065

REACTIONS (4)
  - Drug hypersensitivity [Unknown]
  - Anaphylactic reaction [Unknown]
  - Shock [Unknown]
  - Muscle spasms [Unknown]
